FAERS Safety Report 8788547 (Version 1)
Quarter: 2012Q4

REPORT INFORMATION
  Report Type: 
  Country: US (occurrence: US)
  Receive Date: 20120914
  Receipt Date: 20120914
  Transmission Date: 20130627
  Serious: No
  Sender: FDA-Public Use
  Company Number: US-VERTEX PHARMACEUTICAL INC.-AE-2012-009947

PATIENT
  Age: 71 Year
  Sex: Female
  Weight: 59 kg

DRUGS (4)
  1. INCIVEK [Suspect]
     Indication: HEPATITIS C
     Dosage: 750 mg, tid
     Route: 048
     Dates: start: 20120618
  2. RIBAVIRIN [Concomitant]
     Indication: HEPATITIS C
     Dosage: 2 DF, bid
     Route: 048
     Dates: start: 20120618
  3. PEGASYS [Concomitant]
     Indication: HEPATITIS C
     Dosage: 130 ?g, UNK
     Route: 058
     Dates: start: 20120618, end: 20120716
  4. PEGASYS [Concomitant]
     Dosage: 180 ?g, UNK
     Route: 058
     Dates: start: 20120716

REACTIONS (6)
  - Incorrect dose administered [Recovered/Resolved]
  - Conjunctival pallor [Not Recovered/Not Resolved]
  - Pallor [Not Recovered/Not Resolved]
  - Gingival bleeding [Not Recovered/Not Resolved]
  - Gingival discolouration [Not Recovered/Not Resolved]
  - Rash erythematous [Recovered/Resolved]
